FAERS Safety Report 5309728-2 (Version None)
Quarter: 2007Q2

REPORT INFORMATION
  Report Type: 
  Country: None (occurrence: None)
  Receive Date: 20070427
  Receipt Date: 20061220
  Transmission Date: 20071010
  Serious: No
  Sender: FDA-Public Use
  Company Number: US-GLAXOSMITHKLINE-A0632306A

PATIENT
  Sex: Female

DRUGS (3)
  1. ZOFRAN [Suspect]
     Dosage: 24MG PER DAY
     Route: 042
     Dates: start: 20061117
  2. ZOFRAN [Suspect]
  3. REGLAN [Concomitant]

REACTIONS (3)
  - DRUG EFFECT DECREASED [None]
  - DRUG EXPOSURE DURING PREGNANCY [None]
  - VOMITING [None]
